FAERS Safety Report 25136367 (Version 1)
Quarter: 2025Q1

REPORT INFORMATION
  Report Type: Spontaneous
  Country: US (occurrence: US)
  Receive Date: 20250328
  Receipt Date: 20250328
  Transmission Date: 20250408
  Serious: Yes (Other)
  Sender: THERATECHNOLOGIES
  Company Number: US-THERATECHNOLOGIES INC.-2025-THE-TES-000079

PATIENT

DRUGS (2)
  1. EGRIFTA SV [Suspect]
     Active Substance: TESAMORELIN ACETATE
     Indication: Lipodystrophy acquired
     Dosage: 0.35 ML, QD
     Route: 058
     Dates: start: 202411
  2. MYTESI [Suspect]
     Active Substance: CROFELEMER
     Indication: HIV infection
     Route: 065

REACTIONS (3)
  - Nephrolithiasis [Unknown]
  - Anaemia [Unknown]
  - Dehydration [Unknown]
